FAERS Safety Report 6356749-7 (Version None)
Quarter: 2009Q3

REPORT INFORMATION
  Report Type: 
  Country: None (occurrence: None)
  Receive Date: 20090915
  Receipt Date: 20090903
  Transmission Date: 20100115
  Serious: Yes (Congenital Anomaly, Other)
  Sender: FDA-Public Use
  Company Number: GB-CELGENEUS-167-20484-09090451

PATIENT
  Sex: Male
  Weight: 3.62 kg

DRUGS (5)
  1. INNOHEP [Suspect]
     Route: 064
  2. NIFEDIPINE [Concomitant]
     Route: 064
  3. BETAMETHASONE [Concomitant]
     Route: 064
  4. ENTONOX [Concomitant]
     Route: 064
  5. SYNTOMETRINE [Concomitant]
     Route: 064

REACTIONS (2)
  - DRUG EXPOSURE DURING PREGNANCY [None]
  - HYDRONEPHROSIS [None]
